FAERS Safety Report 24958562 (Version 1)
Quarter: 2025Q1

REPORT INFORMATION
  Report Type: Spontaneous
  Country: JP (occurrence: JP)
  Receive Date: 20250212
  Receipt Date: 20250212
  Transmission Date: 20250409
  Serious: Yes (Hospitalization)
  Sender: Steriscience PTE
  Company Number: JP-STERISCIENCE B.V.-2025-ST-000223

PATIENT
  Age: 23 Year
  Sex: Female
  Weight: 90 kg

DRUGS (22)
  1. ROCURONIUM BROMIDE [Interacting]
     Active Substance: ROCURONIUM BROMIDE
     Indication: General anaesthesia
     Route: 042
  2. AMPICILLIN [Suspect]
     Active Substance: AMPICILLIN
     Indication: Product used for unknown indication
     Route: 042
  3. PROPOFOL [Suspect]
     Active Substance: PROPOFOL
     Indication: General anaesthesia
     Route: 042
  4. REMIFENTANIL [Suspect]
     Active Substance: REMIFENTANIL
     Indication: General anaesthesia
     Dosage: 0.3 MICROGRAM/KILOGRAM, QMINUTE
     Route: 042
  5. REMIFENTANIL [Suspect]
     Active Substance: REMIFENTANIL
     Route: 065
  6. SUGAMMADEX [Interacting]
     Active Substance: SUGAMMADEX
     Indication: Neuromuscular blockade reversal
     Route: 065
  7. CARBAMAZEPINE [Concomitant]
     Active Substance: CARBAMAZEPINE
     Indication: Product used for unknown indication
     Route: 065
  8. SEVOFLURANE [Concomitant]
     Active Substance: SEVOFLURANE
     Indication: General anaesthesia
     Route: 065
  9. LEVOCETIRIZINE [Concomitant]
     Active Substance: LEVOCETIRIZINE
     Indication: Product used for unknown indication
     Route: 065
  10. PRANLUKAST [Concomitant]
     Active Substance: PRANLUKAST
     Indication: Product used for unknown indication
     Route: 065
  11. ZOLPIDEM [Concomitant]
     Active Substance: ZOLPIDEM TARTRATE
     Indication: Product used for unknown indication
     Route: 065
  12. LEMBOREXANT [Concomitant]
     Active Substance: LEMBOREXANT
     Indication: Product used for unknown indication
     Route: 065
  13. MIDAZOLAM [Concomitant]
     Active Substance: MIDAZOLAM
     Indication: Product used for unknown indication
     Route: 065
  14. DESFLURANE [Concomitant]
     Active Substance: DESFLURANE
     Indication: General anaesthesia
     Route: 065
  15. ATROPINE [Concomitant]
     Active Substance: ATROPINE
     Indication: Product used for unknown indication
     Route: 065
  16. PHENYLEPHRINE [Concomitant]
     Active Substance: PHENYLEPHRINE
     Indication: Product used for unknown indication
     Route: 065
  17. FAMOTIDINE [Concomitant]
     Active Substance: FAMOTIDINE
     Indication: Product used for unknown indication
     Route: 065
  18. LIDOCAINE [Concomitant]
     Active Substance: LIDOCAINE
     Indication: Product used for unknown indication
     Route: 065
  19. EPINEPHRINE [Concomitant]
     Active Substance: EPINEPHRINE
     Indication: Product used for unknown indication
     Route: 065
  20. ACETAMINOPHEN [Concomitant]
     Active Substance: ACETAMINOPHEN
     Indication: Product used for unknown indication
     Route: 065
  21. OXYGEN [Concomitant]
     Active Substance: OXYGEN
     Indication: Product used for unknown indication
     Route: 065
  22. OXYGEN [Concomitant]
     Active Substance: OXYGEN
     Route: 065

REACTIONS (2)
  - Erythema [None]
  - Drug interaction [Unknown]
